FAERS Safety Report 9907262 (Version 1)
Quarter: 2014Q1

REPORT INFORMATION
  Report Type: Spontaneous
  Country: IT (occurrence: IT)
  Receive Date: 20140218
  Receipt Date: 20140218
  Transmission Date: 20141002
  Serious: Yes (Hospitalization)
  Sender: FDA-Public Use
  Company Number: IT-MYLANLABS-2014S1002712

PATIENT
  Age: 88 Year
  Sex: Female

DRUGS (7)
  1. REPAGLINIDE [Suspect]
     Indication: DIABETES MELLITUS
     Dosage: 8 MG DAILY
     Route: 048
     Dates: start: 20131115, end: 20131219
  2. AROMASIN [Concomitant]
     Indication: BREAST CANCER
     Route: 048
     Dates: start: 20120101, end: 20131219
  3. LASIX [Concomitant]
     Indication: HYPERTENSION
     Dosage: 25 MG (3 DF)
     Route: 048
  4. SOLDESAM [Concomitant]
     Indication: OSTEOARTHRITIS
     Route: 048
     Dates: start: 20130901, end: 20131201
  5. KANRENOL [Concomitant]
     Indication: PRODUCT USED FOR UNKNOWN INDICATION
  6. TAVOR [Concomitant]
     Indication: PRODUCT USED FOR UNKNOWN INDICATION
     Route: 048
     Dates: start: 20120626, end: 20131219
  7. CITALOPRAM [Concomitant]
     Indication: DYSTHYMIC DISORDER
     Dates: start: 20120626, end: 20131219

REACTIONS (4)
  - Hypoglycaemia [Recovered/Resolved]
  - Sopor [Recovered/Resolved]
  - Drug prescribing error [Recovered/Resolved]
  - Overdose [Recovered/Resolved]
